FAERS Safety Report 7286692-0 (Version None)
Quarter: 2011Q1

REPORT INFORMATION
  Report Type: 
  Country: None (occurrence: None)
  Receive Date: 20110210
  Receipt Date: 20110201
  Transmission Date: 20110831
  Serious: Yes (Hospitalization)
  Sender: FDA-Public Use
  Company Number: US-ELI_LILLY_AND_COMPANY-US201102000650

PATIENT
  Sex: Female

DRUGS (14)
  1. CALCIUM WITH VITAMIN D [Concomitant]
  2. SENNA [Concomitant]
  3. TYLENOL                                 /SCH/ [Concomitant]
  4. METAXALONE [Concomitant]
  5. FORTEO [Suspect]
     Indication: OSTEOLYSIS
     Dosage: 20 UG, DAILY (1/D)
     Route: 065
  6. AMITRIPTYLLIN [Concomitant]
  7. IBUPROFEN [Concomitant]
  8. PREGABALIN [Concomitant]
  9. BISCODYL [Concomitant]
  10. ESOMEPRAZOLE [Concomitant]
  11. GABAPENTIN [Concomitant]
  12. OXYCONTIN [Concomitant]
  13. ENOXAPARIN SODIUM [Concomitant]
  14. LIDOCAINE [Concomitant]

REACTIONS (2)
  - PAIN IN EXTREMITY [None]
  - OFF LABEL USE [None]
